FAERS Safety Report 5654646-3 (Version None)
Quarter: 2008Q1

REPORT INFORMATION
  Report Type: 
  Country: None (occurrence: None)
  Receive Date: 20080219
  Receipt Date: 20071024
  Transmission Date: 20080703
  Serious: No
  Sender: FDA-Public Use
  Company Number: WAES 0710USA04866

PATIENT
  Age: 74 Year
  Sex: Female

DRUGS (12)
  1. JANUVIA [Suspect]
     Dosage: PO
     Route: 048
     Dates: start: 20070801, end: 20071010
  2. ALTACE [Concomitant]
  3. BETIMOL [Concomitant]
  4. CITRACAL [Concomitant]
  5. NOVOLIN [Concomitant]
  6. PLAVIX [Concomitant]
  7. VYTORIN [Concomitant]
  8. ZOCOR [Concomitant]
  9. ALPRAZOLAM [Concomitant]
  10. ASPIRIN [Concomitant]
  11. CYANOCOBALAMIN [Concomitant]
  12. THYROID TAB [Concomitant]

REACTIONS (5)
  - CHEST PAIN [None]
  - HEADACHE [None]
  - PAIN IN EXTREMITY [None]
  - SWELLING [None]
  - WRONG TECHNIQUE IN DRUG USAGE PROCESS [None]
